FAERS Safety Report 5729793-8 (Version None)
Quarter: 2008Q2

REPORT INFORMATION
  Report Type: 
  Country: None (occurrence: None)
  Receive Date: 20080501
  Receipt Date: 20080417
  Transmission Date: 20081010
  Serious: Yes (Death)
  Sender: FDA-Public Use
  Company Number: 2008000670

PATIENT
  Age: 73 Year
  Sex: Male
  Weight: 60 kg

DRUGS (4)
  1. ERLOTINIB (ERLOTINIB HCL) (TABLET) (ERLOTINIB HCL) [Suspect]
     Indication: NON-SMALL CELL LUNG CANCER
     Dosage: (150 MG, QD), ORAL
     Route: 048
     Dates: start: 20080118, end: 20080303
  2. BEVACIZUMAB (INJECTION FOR INFUSION) [Suspect]
     Indication: NON-SMALL CELL LUNG CANCER
     Dosage: (Q3W), INTRAVENOUS
     Route: 042
     Dates: start: 20080118, end: 20080303
  3. BEVACIZUMAB (INJECTION FOR INFUSION) [Suspect]
  4. BEVACIZUMAB (INJECTION FOR INFUSION) [Suspect]

REACTIONS (1)
  - CIRCULATORY COLLAPSE [None]
